FAERS Safety Report 11314233 (Version 1)
Quarter: 2015Q3

REPORT INFORMATION
  Report Type: Spontaneous
  Country: US (occurrence: US)
  Receive Date: 20150727
  Receipt Date: 20150727
  Transmission Date: 20151125
  Serious: No
  Sender: FDA-Public Use
  Company Number: US-GALDERMA-US14003213

PATIENT
  Age: 60 Year
  Sex: Female

DRUGS (5)
  1. MIRVASO [Concomitant]
     Active Substance: BRIMONIDINE TARTRATE
     Dosage: 0.33%
     Dates: end: 201408
  2. SYNTHROID (LEVOTHYROXINE TABLETS, USP) [Concomitant]
     Indication: HYPOTHYROIDISM
     Route: 048
     Dates: start: 2004
  3. MIRVASO [Concomitant]
     Active Substance: BRIMONIDINE TARTRATE
     Indication: HYPOTHYROIDISM
     Dosage: 0.33%
     Dates: start: 201407
  4. UNSPECIFIED MAKEUP [Concomitant]
     Active Substance: UNSPECIFIED INGREDIENT
  5. DIFFERIN [Suspect]
     Active Substance: ADAPALENE
     Indication: ROSACEA

REACTIONS (1)
  - Product use issue [Not Recovered/Not Resolved]
